FAERS Safety Report 5122200-8 (Version None)
Quarter: 2006Q4

REPORT INFORMATION
  Report Type: 
  Country: None (occurrence: None)
  Receive Date: 20061006
  Receipt Date: 20060927
  Transmission Date: 20070319
  Serious: Yes (Death, Hospitalization)
  Sender: FDA-Public Use
  Company Number: AT-ABBOTT-06P-009-0345087-00

PATIENT
  Sex: Male
  Weight: 90 kg

DRUGS (7)
  1. ZEMPLAR [Suspect]
     Indication: HYPERPARATHYROIDISM
     Route: 042
     Dates: start: 20060419, end: 20060724
  2. LANSOPRAZOLE [Concomitant]
     Indication: GASTRITIS
     Route: 048
     Dates: end: 20060724
  3. DILATREND [Concomitant]
     Indication: HYPERTONIA
     Route: 048
     Dates: end: 20060724
  4. FOSINOPRIL SODIUM [Concomitant]
     Indication: CARDIOMYOPATHY
     Route: 048
     Dates: end: 20060724
  5. FUROSEMIDE [Concomitant]
     Indication: RENAL FAILURE
     Route: 048
     Dates: end: 20060724
  6. MARCOMAR [Concomitant]
     Indication: ATRIAL FIBRILLATION
     Route: 048
     Dates: end: 20060724
  7. DARBEPOETIN ALFA [Concomitant]
     Indication: NEPHROGENIC ANAEMIA
     Dates: end: 20060724

REACTIONS (1)
  - VENTRICULAR FIBRILLATION [None]
